FAERS Safety Report 24548212 (Version 1)
Quarter: 2024Q4

REPORT INFORMATION
  Report Type: Report from Study
  Country: CZ (occurrence: CZ)
  Receive Date: 20241025
  Receipt Date: 20241025
  Transmission Date: 20250115
  Serious: Yes (Other)
  Sender: CELLTRION
  Company Number: CZ-CELLTRION INC.-2023CZ002757

PATIENT

DRUGS (4)
  1. ADALIMUMAB-AATY [Suspect]
     Active Substance: ADALIMUMAB-AATY
     Indication: Product used for unknown indication
     Dosage: UNK
     Dates: end: 20221215
  2. ADALIMUMAB-AATY [Suspect]
     Active Substance: ADALIMUMAB-AATY
     Dosage: UNK
  3. ADALIMUMAB-AATY [Suspect]
     Active Substance: ADALIMUMAB-AATY
     Dosage: UNK
     Dates: end: 20230316
  4. ADALIMUMAB-AATY [Suspect]
     Active Substance: ADALIMUMAB-AATY
     Dosage: UNK
     Dates: end: 20240926

REACTIONS (7)
  - Pneumothorax [Recovered/Resolved]
  - Polyneuropathy [Recovering/Resolving]
  - Nasopharyngitis [Recovered/Resolved]
  - Urinary tract infection [Recovered/Resolved]
  - Respiratory tract infection [Recovered/Resolved]
  - Influenza [Recovered/Resolved]
  - Oral herpes [Recovered/Resolved]

NARRATIVE: CASE EVENT DATE: 20221108
